FAERS Safety Report 5531177-2 (Version None)
Quarter: 2007Q4

REPORT INFORMATION
  Report Type: 
  Country: None (occurrence: None)
  Receive Date: 20071130
  Receipt Date: 20071119
  Transmission Date: 20080405
  Serious: Yes (Hospitalization, Other)
  Sender: FDA-Public Use
  Company Number: US-PFIZER INC-2007099488

PATIENT
  Sex: Female

DRUGS (2)
  1. ZOLOFT [Suspect]
  2. CELEXA [Suspect]

REACTIONS (11)
  - APHASIA [None]
  - BALANCE DISORDER [None]
  - BLOOD PRESSURE INCREASED [None]
  - CENTRAL NERVOUS SYSTEM STIMULATION [None]
  - CONVERSION DISORDER [None]
  - HEADACHE [None]
  - MUSCLE TWITCHING [None]
  - MYOCLONUS [None]
  - PARALYSIS [None]
  - SPEECH DISORDER [None]
  - VISION BLURRED [None]
